FAERS Safety Report 8445018-7 (Version None)
Quarter: 2012Q2

REPORT INFORMATION
  Report Type: 
  Country: None (occurrence: None)
  Receive Date: 20120618
  Receipt Date: 20120605
  Transmission Date: 20120825
  Serious: Yes (Hospitalization, Other)
  Sender: FDA-Public Use
  Company Number: JP-ROCHE-1058181

PATIENT
  Sex: Male
  Weight: 45 kg

DRUGS (11)
  1. AMARYL [Concomitant]
     Dosage: BEFORE THE MORNING
     Route: 048
  2. ZOLPIDEM [Concomitant]
     Dosage: NEMUMAE
     Route: 048
  3. THEO-DUR [Concomitant]
     Dosage: EMPRESS IN EVENING
     Route: 048
  4. MAGNESIUM OXIDE [Concomitant]
     Dosage: THE MORNING AND EVENING
     Route: 048
  5. SPIRIVA [Concomitant]
     Route: 055
  6. OLOPATADINE HCL [Concomitant]
     Dosage: THE MORNING AND EVENING
     Route: 048
  7. ROCEPHIN [Suspect]
     Dosage: DOSAGE IS UNCERTAIN.
     Route: 042
     Dates: start: 20120322, end: 20120322
  8. NEOMALLERMIN-TR [Concomitant]
     Dosage: THE MORNING AND EVENING
     Route: 048
  9. ROCEPHIN [Suspect]
     Dosage: DOSAGE IS UNCERTAIN.
     Route: 042
     Dates: start: 20120317, end: 20120322
  10. ROCEPHIN [Suspect]
     Indication: PNEUMONIA
     Dosage: DOSAGE IS UNCERTAIN.
     Route: 042
     Dates: start: 20120316, end: 20120316
  11. MUCOSOLVAN L [Concomitant]
     Dosage: EVENING
     Route: 048

REACTIONS (4)
  - PANCREATITIS [None]
  - CHOLECYSTITIS [None]
  - EPILEPSY [None]
  - CHOLELITHIASIS [None]
